FAERS Safety Report 9543459 (Version 1)
Quarter: 2013Q3

REPORT INFORMATION
  Report Type: Spontaneous
  Country: US (occurrence: US)
  Receive Date: 20130923
  Receipt Date: 20130923
  Transmission Date: 20140515
  Serious: Yes (Other)
  Sender: FDA-Public Use
  Company Number: US-AMGEN-USASP2013065410

PATIENT
  Age: 70 Year
  Sex: Female
  Weight: 52.15 kg

DRUGS (5)
  1. NEUPOGEN [Suspect]
     Indication: NEUTROPHIL COUNT DECREASED
     Dosage: 300 MCG, UNK
     Route: 065
  2. FOLINIC ACID [Concomitant]
     Dosage: UNK
  3. FLUOROURACIL [Concomitant]
     Dosage: UNK
  4. IRINOTECAN [Concomitant]
     Dosage: UNK
  5. OXALIPLATIN [Concomitant]
     Dosage: UNK

REACTIONS (4)
  - Pancreatic carcinoma [Unknown]
  - Neutrophil count abnormal [Unknown]
  - Bone pain [Unknown]
  - Pain [Unknown]
